FAERS Safety Report 8364060-8 (Version None)
Quarter: 2012Q1

REPORT INFORMATION
  Report Type: 
  Country: None (occurrence: None)
  Receive Date: 20120323
  Receipt Date: 20111222
  Transmission Date: 20120608
  Serious: Yes (Other)
  Sender: FDA-Public Use
  Company Number: 163-21880-11123407

PATIENT
  Age: 54 Year
  Sex: Female

DRUGS (8)
  1. ASPIRIN [Concomitant]
  2. ATENOLOL [Concomitant]
  3. REVLIMID [Suspect]
     Indication: MULTIPLE MYELOMA
     Dosage: 25 MG, DAILY X 21 D/28D, PO; 15 MG, DAILY X21D/28D, PO
     Route: 048
     Dates: start: 20111101
  4. REVLIMID [Suspect]
     Indication: MULTIPLE MYELOMA
     Dosage: 25 MG, DAILY X 21 D/28D, PO; 15 MG, DAILY X21D/28D, PO
     Route: 048
     Dates: start: 20111223
  5. NORTRIPTYLINE HCL [Concomitant]
  6. DEXAMETHASONE (DEXAMETAHSONE) [Concomitant]
  7. AMLODIPINE [Concomitant]
  8. NORETHINDRONE-ETH ESTRADIOL TRIPHASIC (NORMENSAL) [Concomitant]

REACTIONS (1)
  - MUSCLE SPASMS [None]
